FAERS Safety Report 8061028-6 (Version None)
Quarter: 2012Q1

REPORT INFORMATION
  Report Type: 
  Country: None (occurrence: None)
  Receive Date: 20120120
  Receipt Date: 20110504
  Transmission Date: 20120608
  Serious: No
  Sender: FDA-Public Use
  Company Number: US-ALLERGAN-1106142US

PATIENT
  Age: 70 Year
  Sex: Female

DRUGS (2)
  1. RESTASIS [Suspect]
     Indication: DRY EYE
     Dosage: 2 GTT, BID
     Dates: start: 20110413
  2. VISINE EYE DROPS [Concomitant]
     Dosage: DROPS
     Route: 047

REACTIONS (1)
  - VITREOUS FLOATERS [None]
